FAERS Safety Report 14510585 (Version 1)
Quarter: 2018Q1

REPORT INFORMATION
  Report Type: Spontaneous
  Country: US (occurrence: US)
  Receive Date: 20180208
  Receipt Date: 20180208
  Transmission Date: 20180509
  Serious: No
  Sender: FDA-Public Use
  Company Number: None

PATIENT
  Sex: Female
  Weight: 99.79 kg

DRUGS (2)
  1. SIMPONI ARIA [Suspect]
     Active Substance: GOLIMUMAB
     Dosage: 223MG Q8W IV
     Route: 042
     Dates: start: 201412
  2. ZOLEDRONIC ACID 5MG/100ML GENERIC [Suspect]
     Active Substance: ZOLEDRONIC ACID
     Indication: RHEUMATOID ARTHRITIS
     Dosage: 5MG YEARLY IV
     Route: 042
     Dates: start: 201411

REACTIONS (1)
  - Catheter removal [None]
